FAERS Safety Report 6263562-8 (Version None)
Quarter: 2009Q3

REPORT INFORMATION
  Report Type: 
  Country: None (occurrence: None)
  Receive Date: 20090710
  Receipt Date: 20090427
  Transmission Date: 20100115
  Serious: No
  Sender: FDA-Public Use
  Company Number: A0780765A

PATIENT
  Age: 44 Year
  Sex: Female

DRUGS (4)
  1. TYKERB [Suspect]
     Indication: BREAST CANCER
     Dosage: 5TAB PER DAY
     Route: 048
     Dates: start: 20090301, end: 20090413
  2. XELODA [Concomitant]
  3. ATIVAN [Concomitant]
  4. RADIATION [Concomitant]

REACTIONS (2)
  - PYREXIA [None]
  - RASH [None]
